FAERS Safety Report 24540266 (Version 2)
Quarter: 2024Q4

REPORT INFORMATION
  Report Type: Spontaneous
  Country: JP (occurrence: JP)
  Receive Date: 20241023
  Receipt Date: 20241023
  Transmission Date: 20250115
  Serious: Yes (Other)
  Sender: ALEXION PHARMACEUTICALS
  Company Number: JP-ASTRAZENECA-240103128_064320_P_1

PATIENT
  Age: 50 Year

DRUGS (28)
  1. ANDEXXA [Suspect]
     Active Substance: ANDEXANET ALFA
     Indication: Subarachnoid haemorrhage
     Dosage: AT A RATE OF 30 MG/MIN
  2. ANDEXXA [Suspect]
     Active Substance: ANDEXANET ALFA
     Dosage: AT A RATE OF 30 MG/MIN
  3. ANDEXXA [Suspect]
     Active Substance: ANDEXANET ALFA
     Dosage: AT A RATE OF 30 MG/MIN
  4. ANDEXXA [Suspect]
     Active Substance: ANDEXANET ALFA
     Dosage: AT A RATE OF 30 MG/MIN
  5. ANDEXXA [Suspect]
     Active Substance: ANDEXANET ALFA
     Dosage: AT A RATE OF 4 MG/MIN FOR 2 H
  6. ANDEXXA [Suspect]
     Active Substance: ANDEXANET ALFA
     Dosage: AT A RATE OF 4 MG/MIN FOR 2 H
  7. ANDEXXA [Suspect]
     Active Substance: ANDEXANET ALFA
     Dosage: AT A RATE OF 4 MG/MIN FOR 2 H
  8. ANDEXXA [Suspect]
     Active Substance: ANDEXANET ALFA
     Dosage: AT A RATE OF 4 MG/MIN FOR 2 H
  9. ANDEXXA [Suspect]
     Active Substance: ANDEXANET ALFA
     Dosage: SEE NARRATIVE
  10. ANDEXXA [Suspect]
     Active Substance: ANDEXANET ALFA
     Dosage: SEE NARRATIVE
  11. ANDEXXA [Suspect]
     Active Substance: ANDEXANET ALFA
     Dosage: SEE NARRATIVE
  12. ANDEXXA [Suspect]
     Active Substance: ANDEXANET ALFA
     Dosage: SEE NARRATIVE
  13. EDOXABAN TOSYLATE [Concomitant]
     Active Substance: EDOXABAN TOSYLATE
     Dosage: DOSE UNKNOWN
  14. EDOXABAN TOSYLATE [Concomitant]
     Active Substance: EDOXABAN TOSYLATE
     Dosage: DOSE UNKNOWN
     Route: 065
  15. VONOPRAZAN FUMARATE [Concomitant]
     Active Substance: VONOPRAZAN FUMARATE
     Dosage: DOSE UNKNOWN
  16. VONOPRAZAN FUMARATE [Concomitant]
     Active Substance: VONOPRAZAN FUMARATE
     Dosage: DOSE UNKNOWN
     Route: 065
  17. TORSEMIDE [Concomitant]
     Active Substance: TORSEMIDE
     Dosage: DOSE UNKNOWN
  18. TORSEMIDE [Concomitant]
     Active Substance: TORSEMIDE
     Dosage: DOSE UNKNOWN
     Route: 065
  19. IRBESARTAN [Concomitant]
     Active Substance: IRBESARTAN
     Dosage: DOSE UNKNOWN
  20. IRBESARTAN [Concomitant]
     Active Substance: IRBESARTAN
     Dosage: DOSE UNKNOWN
     Route: 065
  21. AMLODIPINE [Concomitant]
     Active Substance: AMLODIPINE BESYLATE
     Dosage: DOSE UNKNOWN
  22. AMLODIPINE [Concomitant]
     Active Substance: AMLODIPINE BESYLATE
     Dosage: DOSE UNKNOWN
     Route: 065
  23. FEBUXOSTAT [Concomitant]
     Active Substance: FEBUXOSTAT
     Dosage: DOSE UNKNOWN
  24. FEBUXOSTAT [Concomitant]
     Active Substance: FEBUXOSTAT
     Dosage: DOSE UNKNOWN
     Route: 065
  25. BISOPROLOL [Concomitant]
     Active Substance: BISOPROLOL\BISOPROLOL FUMARATE
     Dosage: DOSE UNKNOWN
  26. BISOPROLOL [Concomitant]
     Active Substance: BISOPROLOL\BISOPROLOL FUMARATE
     Dosage: DOSE UNKNOWN
     Route: 065
  27. HEPARIN SODIUM [Concomitant]
     Active Substance: HEPARIN SODIUM
  28. HEPARIN SODIUM [Concomitant]
     Active Substance: HEPARIN SODIUM
     Route: 065

REACTIONS (4)
  - Carotid artery thrombosis [Recovered/Resolved]
  - Heparin resistance [Recovered/Resolved]
  - Carotid artery occlusion [Recovered/Resolved]
  - Cerebral infarction [Recovered/Resolved]
